FAERS Safety Report 15980759 (Version 1)
Quarter: 2019Q1

REPORT INFORMATION
  Report Type: Spontaneous
  Country: US (occurrence: US)
  Receive Date: 20190219
  Receipt Date: 20190219
  Transmission Date: 20190418
  Serious: Yes (Other)
  Sender: FDA-Public Use
  Company Number: US-ENDO PHARMACEUTICALS INC-2018-042661

PATIENT
  Sex: Male

DRUGS (1)
  1. OXYCODONE HYDROCHLORIDE. [Suspect]
     Active Substance: OXYCODONE HYDROCHLORIDE
     Indication: PAIN
     Dosage: 30 MG, QID
     Route: 065
     Dates: end: 20181005

REACTIONS (6)
  - Therapeutic response unexpected [Unknown]
  - Drug ineffective [Unknown]
  - Euphoric mood [Unknown]
  - Emotional distress [Unknown]
  - Seizure [Unknown]
  - Drug dependence [Unknown]
